FAERS Safety Report 9197866 (Version 2)
Quarter: 2013Q2

REPORT INFORMATION
  Report Type: Report from Study
  Country: JP (occurrence: JP)
  Receive Date: 20130328
  Receipt Date: 20130517
  Transmission Date: 20140414
  Serious: Yes (Death, Hospitalization)
  Sender: FDA-Public Use
  Company Number: JP-ACTELION-A-CH2013-78840

PATIENT
  Age: 11 Month
  Sex: Female
  Weight: 5.1 kg

DRUGS (6)
  1. TRACLEER [Suspect]
     Indication: PULMONARY ARTERIAL HYPERTENSION
     Dosage: 3.13 MG, TID
     Route: 048
     Dates: start: 20091129, end: 20100112
  2. TRACLEER [Suspect]
     Dosage: 1.88 MG, TID
     Route: 048
     Dates: start: 20091026, end: 20091128
  3. EPOPROSTENOL SODIUM [Concomitant]
  4. BERAPROST SODIUM [Concomitant]
  5. DIGOXIN [Concomitant]
  6. OXYGEN [Concomitant]

REACTIONS (4)
  - Cardiac failure [Fatal]
  - Trisomy 18 [Fatal]
  - Nasopharyngitis [Not Recovered/Not Resolved]
  - Dyspnoea [Fatal]
